FAERS Safety Report 16683266 (Version 1)
Quarter: 2019Q3

REPORT INFORMATION
  Report Type: Spontaneous
  Country: US (occurrence: US)
  Receive Date: 20190808
  Receipt Date: 20190808
  Transmission Date: 20191004
  Serious: Yes (Death, Life-Threatening, Hospitalization)
  Sender: FDA-Public Use
  Company Number: US-HONG KONG KING-FRIEND INDUSTRIAL COMPANY-2019NKF00016

PATIENT
  Age: 75 Year
  Sex: Male

DRUGS (2)
  1. GEMCITABINE. [Suspect]
     Active Substance: GEMCITABINE
     Indication: PANCREATIC CARCINOMA STAGE I
     Dosage: 1862 MG, 1X/WEEK (1,000 MG/M2; ON DAYS 1, 8, AND 15 ON A 28-DAY CYCLE FOR 6 CYCLES)
     Route: 065
  2. CAPECITABINE. [Suspect]
     Active Substance: CAPECITABINE
     Indication: PANCREATIC CARCINOMA STAGE I
     Dosage: 1150 MG, 2X/DAY (620 MG/M2; ON DAYS 1?21 OF EACH 28-DAY CYCLE)
     Route: 048

REACTIONS (8)
  - Syncope [Recovered/Resolved]
  - Acute respiratory distress syndrome [Fatal]
  - Pulmonary toxicity [Fatal]
  - Atelectasis [Fatal]
  - Pulseless electrical activity [Recovered/Resolved]
  - Pneumonia [Fatal]
  - Lung consolidation [Fatal]
  - Respiratory failure [Fatal]
